FAERS Safety Report 5560204-1 (Version None)
Quarter: 2007Q4

REPORT INFORMATION
  Report Type: 
  Country: None (occurrence: None)
  Receive Date: 20071214
  Receipt Date: 20071030
  Transmission Date: 20080405
  Serious: Yes (Hospitalization)
  Sender: FDA-Public Use
  Company Number: US-ABBOTT-07P-163-0422987-00

PATIENT
  Sex: Male
  Weight: 79.45 kg

DRUGS (4)
  1. HUMIRA [Suspect]
     Indication: CROHN'S DISEASE
     Route: 058
     Dates: start: 20071025, end: 20071025
  2. HUMIRA [Suspect]
     Route: 058
  3. HUMIRA [Suspect]
     Route: 058
     Dates: start: 20061001, end: 20071011
  4. AZATHIOPRINE [Suspect]
     Indication: CROHN'S DISEASE
     Dates: start: 20071018, end: 20071026

REACTIONS (2)
  - CROHN'S DISEASE [None]
  - KIDNEY INFECTION [None]
